FAERS Safety Report 13839151 (Version 1)
Quarter: 2017Q3

REPORT INFORMATION
  Report Type: Spontaneous
  Country: US (occurrence: US)
  Receive Date: 20170806
  Receipt Date: 20170806
  Transmission Date: 20171127
  Serious: Yes (Life-Threatening, Other)
  Sender: FDA-Public Use
  Company Number: None

PATIENT
  Sex: Male
  Weight: 60.75 kg

DRUGS (6)
  1. LEXAPRO [Suspect]
     Active Substance: ESCITALOPRAM OXALATE
     Indication: DEPRESSION
     Dosage: ?          QUANTITY:1 CAPSULE(S);?
     Route: 048
     Dates: start: 20161128, end: 20170117
  2. MULTI VITAMIN [Concomitant]
     Active Substance: VITAMINS
  3. LISINOPRIL. [Concomitant]
     Active Substance: LISINOPRIL
  4. MIRALAX [Concomitant]
     Active Substance: POLYETHYLENE GLYCOL 3350
  5. PRILOSEC [Concomitant]
     Active Substance: OMEPRAZOLE MAGNESIUM
  6. FISH OIL [Concomitant]
     Active Substance: FISH OIL

REACTIONS (2)
  - Suicidal ideation [None]
  - Self-injurious ideation [None]

NARRATIVE: CASE EVENT DATE: 20170116
